FAERS Safety Report 10469733 (Version 1)
Quarter: 2014Q3

REPORT INFORMATION
  Report Type: Spontaneous
  Country: US (occurrence: None)
  Receive Date: 20140922
  Receipt Date: 20140922
  Transmission Date: 20150326
  Serious: Yes (Hospitalization)
  Sender: FDA-Public Use
  Company Number: None

PATIENT
  Age: 68 Year
  Sex: Male
  Weight: 114.9 kg

DRUGS (2)
  1. TORSEMIDE. [Suspect]
     Active Substance: TORSEMIDE
     Indication: CARDIAC FAILURE CONGESTIVE
     Route: 048
     Dates: start: 20110615
  2. METOLAZONE. [Suspect]
     Active Substance: METOLAZONE
     Indication: CARDIAC FAILURE CONGESTIVE
     Route: 048
     Dates: start: 20140813, end: 20140828

REACTIONS (12)
  - Lip dry [None]
  - Hypokalaemia [None]
  - Urine output decreased [None]
  - Weight decreased [None]
  - Dyspnoea [None]
  - Hypotension [None]
  - Dry mouth [None]
  - Fluid overload [None]
  - Balance disorder [None]
  - Dysphonia [None]
  - Renal failure acute [None]
  - Dizziness [None]

NARRATIVE: CASE EVENT DATE: 20140818
